FAERS Safety Report 8533754-3 (Version None)
Quarter: 2012Q3

REPORT INFORMATION
  Report Type: 
  Country: None (occurrence: None)
  Receive Date: 20120711
  Receipt Date: 20120702
  Transmission Date: 20120928
  Serious: Yes (Death, Hospitalization)
  Sender: FDA-Public Use
  Company Number: AE-12-006

PATIENT
  Age: 59 Year
  Sex: Male
  Weight: 95.2 kg

DRUGS (6)
  1. VYTORIN [Concomitant]
  2. METOPROLOL SUCCINATE [Suspect]
     Indication: HYPERTENSION
     Dosage: 50MG-QD-ORAL
     Route: 048
     Dates: start: 20080908, end: 20081205
  3. LOVAZA [Concomitant]
  4. IRBESARTAN [Concomitant]
  5. ALFUZOSIN HYDROCHLORIDE [Concomitant]
  6. DOXIUM [Concomitant]

REACTIONS (16)
  - DISCOMFORT [None]
  - PRODUCT QUALITY ISSUE [None]
  - LOCAL SWELLING [None]
  - HEADACHE [None]
  - LOSS OF CONSCIOUSNESS [None]
  - SNORING [None]
  - SUBARACHNOID HAEMORRHAGE [None]
  - CAROTID ARTERY ANEURYSM [None]
  - OEDEMA PERIPHERAL [None]
  - IRRITABLE BOWEL SYNDROME [None]
  - BLOOD PRESSURE INCREASED [None]
  - FLUSHING [None]
  - HYPERTENSIVE CRISIS [None]
  - COMA [None]
  - OVERDOSE [None]
  - PAIN [None]
